FAERS Safety Report 6258965-1 (Version None)
Quarter: 2009Q3

REPORT INFORMATION
  Report Type: 
  Country: None (occurrence: None)
  Receive Date: 20090702
  Receipt Date: 20090622
  Transmission Date: 20100115
  Serious: Yes (Other)
  Sender: FDA-Public Use
  Company Number: 232165K08USA

PATIENT
  Age: 51 Year
  Sex: Female

DRUGS (6)
  1. REBIF [Suspect]
     Indication: MULTIPLE SCLEROSIS
     Dosage: 44 MCG, 3 IN 1 WEEKS, SUBCUTANEOUS
     Route: 058
     Dates: start: 20060301
  2. SYNTHROID [Concomitant]
  3. ZOLOFT [Concomitant]
  4. ADDERALL (OBETROL [Concomitant]
  5. BACLOFEN [Concomitant]
  6. BLADDER MEDICATION (ALL OTHER THERAPEUTIC PRODUCTS) [Concomitant]

REACTIONS (2)
  - INJECTION SITE HAEMATOMA [None]
  - UTERINE LEIOMYOMA [None]
